FAERS Safety Report 7373889-4 (Version None)
Quarter: 2011Q1

REPORT INFORMATION
  Report Type: 
  Country: None (occurrence: None)
  Receive Date: 20110317
  Receipt Date: 20110308
  Transmission Date: 20110831
  Serious: Yes (Hospitalization, Other)
  Sender: FDA-Public Use
  Company Number: 2010SP062541

PATIENT
  Age: 32 Year
  Sex: Female
  Weight: 90.7194 kg

DRUGS (1)
  1. NUVARING [Suspect]
     Indication: CONTRACEPTION
     Dates: start: 20071201, end: 20081101

REACTIONS (4)
  - HYPOTHYROIDISM [None]
  - OVARIAN CYST [None]
  - CONVULSION [None]
  - CEREBROVASCULAR ACCIDENT [None]
